FAERS Safety Report 25681837 (Version 3)
Quarter: 2025Q3

REPORT INFORMATION
  Report Type: Report from Study
  Country: US (occurrence: US)
  Receive Date: 20250814
  Receipt Date: 20250925
  Transmission Date: 20251020
  Serious: No
  Sender: MALLINCKRODT
  Company Number: US-MALLINCKRODT-MNK202504992

PATIENT
  Age: 72 Year
  Sex: Female

DRUGS (1)
  1. CORTICOTROPIN [Suspect]
     Active Substance: CORTICOTROPIN
     Indication: Punctate keratitis
     Route: 058
     Dates: start: 20250711, end: 2025

REACTIONS (7)
  - Amnesia [Unknown]
  - Mental impairment [Unknown]
  - Incorrect dose administered [Unknown]
  - Wrong technique in product usage process [None]
  - Therapy cessation [None]
  - Product use issue [None]
  - Mental impairment [None]

NARRATIVE: CASE EVENT DATE: 20250101
